FAERS Safety Report 21247413 (Version 2)
Quarter: 2022Q3

REPORT INFORMATION
  Report Type: Report from Study
  Country: RU (occurrence: RU)
  Receive Date: 20220824
  Receipt Date: 20220906
  Transmission Date: 20221027
  Serious: Yes (Other)
  Sender: FDA-Public Use
  Company Number: RU-NOVARTISPH-NVSC2022RU187828

PATIENT
  Age: 66 Year
  Sex: Female

DRUGS (6)
  1. RIBOCICLIB SUCCINATE [Suspect]
     Active Substance: RIBOCICLIB SUCCINATE
     Indication: Breast cancer
     Dosage: 600 MG, QD (PER DAY) (STOPPED ON 15 AUG 2022)
     Route: 048
     Dates: start: 202206
  2. RIBOCICLIB SUCCINATE [Suspect]
     Active Substance: RIBOCICLIB SUCCINATE
     Indication: Oesophageal carcinoma
  3. FULVESTRANT [Suspect]
     Active Substance: FULVESTRANT
     Indication: Product used for unknown indication
     Dosage: 500 MG (ONCE IN  28  DAYS)
     Route: 030
  4. UMIFENOVIR [Concomitant]
     Active Substance: UMIFENOVIR
     Indication: Product used for unknown indication
     Dosage: UNK
     Route: 065
  5. FLEMOXIN [Concomitant]
     Indication: Product used for unknown indication
     Dosage: 1000 MG, BID
     Route: 065
  6. BENZYDAMINE HYDROCHLORIDE [Concomitant]
     Active Substance: BENZYDAMINE HYDROCHLORIDE
     Indication: Product used for unknown indication
     Dosage: UNK
     Route: 065

REACTIONS (6)
  - Neutrophil count abnormal [Recovered/Resolved]
  - White blood cell disorder [Recovered/Resolved]
  - Asthenia [Not Recovered/Not Resolved]
  - Haemoglobin abnormal [Recovered/Resolved]
  - COVID-19 [Recovered/Resolved]
  - Product use in unapproved indication [Unknown]

NARRATIVE: CASE EVENT DATE: 20220810
